FAERS Safety Report 12995207 (Version 1)
Quarter: 2016Q4

REPORT INFORMATION
  Report Type: Spontaneous
  Country: US (occurrence: US)
  Receive Date: 20161202
  Receipt Date: 20161202
  Transmission Date: 20170207
  Serious: Yes (Death)
  Sender: FDA-Public Use
  Company Number: US-ENDO PHARMACEUTICALS INC.-2016-007063

PATIENT
  Age: 58 Year
  Sex: Male
  Weight: 58.11 kg

DRUGS (2)
  1. EDEX [Suspect]
     Active Substance: ALPROSTADIL
     Indication: ERECTILE DYSFUNCTION
     Route: 065
     Dates: start: 2012, end: 2012
  2. DIAZEPAM. [Concomitant]
     Active Substance: DIAZEPAM
     Indication: RESTLESS LEGS SYNDROME
     Route: 065

REACTIONS (1)
  - Lung neoplasm malignant [Fatal]

NARRATIVE: CASE EVENT DATE: 20120628
